FAERS Safety Report 12443817 (Version 1)
Quarter: 2016Q2

REPORT INFORMATION
  Report Type: Spontaneous
  Country: US (occurrence: US)
  Receive Date: 20160607
  Receipt Date: 20160607
  Transmission Date: 20160815
  Serious: No
  Sender: FDA-Public Use
  Company Number: US-DSJP-DSU-2015-139881

PATIENT
  Sex: Female
  Weight: 41.72 kg

DRUGS (2)
  1. BENICAR [Suspect]
     Active Substance: OLMESARTAN MEDOXOMIL
     Dosage: 20 MG, QD
     Route: 048
     Dates: start: 20151212
  2. BENICAR [Suspect]
     Active Substance: OLMESARTAN MEDOXOMIL
     Indication: HYPERTENSION
     Dosage: 1/2 (40 MG) TABLET, BID (ONE HALF IN THE MORNING AND THE OTHER HALF IN THE EVENING)
     Dates: start: 2009, end: 201506

REACTIONS (4)
  - Alopecia [Recovered/Resolved]
  - Gait disturbance [Not Recovered/Not Resolved]
  - Inflammation [Not Recovered/Not Resolved]
  - Drug administration error [Recovered/Resolved]

NARRATIVE: CASE EVENT DATE: 2009
